FAERS Safety Report 24971628 (Version 1)
Quarter: 2025Q1

REPORT INFORMATION
  Report Type: Spontaneous
  Country: US (occurrence: None)
  Receive Date: 20250214
  Receipt Date: 20250214
  Transmission Date: 20250408
  Serious: Yes (Hospitalization)
  Sender: FDA-CTU
  Company Number: None

PATIENT
  Age: 82 Year
  Sex: Female
  Weight: 60.75 kg

DRUGS (10)
  1. OZEMPIC [Suspect]
     Active Substance: SEMAGLUTIDE
     Indication: Type 2 diabetes mellitus
     Route: 003
     Dates: start: 20230923, end: 20250208
  2. GABAPENTIN [Concomitant]
     Active Substance: GABAPENTIN
     Dates: start: 20230321
  3. TELMISARTAN [Concomitant]
     Active Substance: TELMISARTAN
     Dates: start: 20220525
  4. AMLODIPINE [Concomitant]
     Active Substance: AMLODIPINE BESYLATE
     Dates: start: 20220712
  5. METFORMIN [Concomitant]
     Active Substance: METFORMIN HYDROCHLORIDE
     Dates: start: 20220525
  6. VITAMIN D [Concomitant]
     Active Substance: VITAMIN D NOS
     Dates: start: 20220525
  7. ALPHA LIPOIC ACID [Concomitant]
     Active Substance: .ALPHA.-LIPOIC ACID
     Dates: start: 20230621
  8. ROSUVASTATIN [Concomitant]
     Active Substance: ROSUVASTATIN
     Dates: start: 20240108
  9. GLIPIZIDE [Concomitant]
     Active Substance: GLIPIZIDE
     Dates: start: 20231027
  10. METOPROLOL [Concomitant]
     Active Substance: METOPROLOL
     Dates: start: 20220525

REACTIONS (1)
  - Deep vein thrombosis [None]

NARRATIVE: CASE EVENT DATE: 20250118
